FAERS Safety Report 7437439-6 (Version None)
Quarter: 2011Q2

REPORT INFORMATION
  Report Type: 
  Country: None (occurrence: None)
  Receive Date: 20110426
  Receipt Date: 20100622
  Transmission Date: 20111010
  Serious: No
  Sender: FDA-Public Use
  Company Number: US-PFIZER INC-2010054999

PATIENT
  Sex: Female
  Weight: 101.59 kg

DRUGS (8)
  1. ASCORBIC ACID [Concomitant]
     Dosage: UNK
  2. HYDROCHLOROTHIAZIDE [Concomitant]
     Dosage: UNK
  3. TEMOVATE [Concomitant]
     Dosage: 2X/DAY
     Route: 061
  4. ESTRING [Suspect]
     Indication: OESTROGEN REPLACEMENT THERAPY
     Dosage: 2 MG, UNK
     Dates: start: 20100415
  5. MOTRIN [Concomitant]
     Dosage: AS NEEDED
  6. LEVOTHYROXINE [Concomitant]
     Indication: THYROID DISORDER
     Dosage: UNK
     Route: 048
  7. IBUPROFEN [Concomitant]
     Dosage: AS NEEDED
  8. MULTI-VITAMINS [Concomitant]
     Dosage: UNK

REACTIONS (5)
  - HEADACHE [None]
  - ABNORMAL DREAMS [None]
  - FEELING ABNORMAL [None]
  - PAIN [None]
  - INSOMNIA [None]
